FAERS Safety Report 5904583-1 (Version None)
Quarter: 2008Q4

REPORT INFORMATION
  Report Type: 
  Country: None (occurrence: None)
  Receive Date: 20081001
  Receipt Date: 20080922
  Transmission Date: 20090506
  Serious: Yes (Life-Threatening, Hospitalization, Other)
  Sender: FDA-Public Use
  Company Number: DK-ELI_LILLY_AND_COMPANY-DK200809004732

PATIENT
  Sex: Female

DRUGS (5)
  1. FORTEO [Suspect]
     Indication: OSTEOPOROSIS
     Dosage: 20 UG, DAILY (1/D)
     Route: 065
  2. FURIX [Concomitant]
     Indication: ACUTE MYOCARDIAL INFARCTION
     Dosage: 40 MBQ, DAILY (1/D)
     Route: 065
  3. PLAVIX [Concomitant]
     Indication: ACUTE MYOCARDIAL INFARCTION
     Dosage: 75 MG, DAILY (1/D)
     Route: 065
  4. SELOZOK [Concomitant]
     Indication: ACUTE MYOCARDIAL INFARCTION
     Dosage: 50 MG, 2/D
     Route: 065
  5. CORODIL [Concomitant]
     Indication: ACUTE MYOCARDIAL INFARCTION
     Dosage: 5 MG, DAILY (1/D)
     Route: 065

REACTIONS (2)
  - ACUTE MYOCARDIAL INFARCTION [None]
  - ANGIOPATHY [None]
